FAERS Safety Report 9190106 (Version 1)
Quarter: 2013Q1

REPORT INFORMATION
  Report Type: Spontaneous
  Country: US (occurrence: US)
  Receive Date: 20130326
  Receipt Date: 20130326
  Transmission Date: 20140127
  Serious: Yes (Hospitalization, Other)
  Sender: FDA-Public Use
  Company Number: US-BRISTOL-MYERS SQUIBB COMPANY-18595793

PATIENT
  Age: 75 Year
  Sex: Female

DRUGS (2)
  1. WARFARIN SODIUM [Suspect]
  2. SOLIRIS [Suspect]
     Indication: PAROXYSMAL NOCTURNAL HAEMOGLOBINURIA
     Dosage: RECENT INF:20FEB13.?300MG CONCENTRATION FOR SOLUTION FOR INFUSION, 10 MG/ML
     Route: 042

REACTIONS (6)
  - Pulmonary embolism [Unknown]
  - Pneumonia [Unknown]
  - Atrial fibrillation [Unknown]
  - Haemoglobinuria [Not Recovered/Not Resolved]
  - Haemoglobin decreased [Unknown]
  - Anticoagulation drug level above therapeutic [Unknown]
